FAERS Safety Report 7094423-2 (Version None)
Quarter: 2010Q4

REPORT INFORMATION
  Report Type: 
  Country: None (occurrence: None)
  Receive Date: 20101110
  Receipt Date: 20101103
  Transmission Date: 20110411
  Serious: Yes (Other)
  Sender: FDA-Public Use
  Company Number: US-GENZYME-MOZO-1000381

PATIENT
  Sex: Female

DRUGS (2)
  1. MOZOBIL [Suspect]
     Indication: HAEMATOPOIETIC STEM CELL MOBILISATION
  2. MOZOBIL [Suspect]
     Indication: LYMPHOMA

REACTIONS (1)
  - ACUTE MYELOID LEUKAEMIA [None]
